FAERS Safety Report 16570625 (Version 6)
Quarter: 2020Q1

REPORT INFORMATION
  Report Type: Spontaneous
  Country: DE (occurrence: DE)
  Receive Date: 20190715
  Receipt Date: 20200224
  Transmission Date: 20200409
  Serious: Yes (Hospitalization, Other)
  Sender: FDA-Public Use
  Company Number: PHHY2019DE161005

PATIENT
  Sex: Female

DRUGS (17)
  1. VALSARTAN. [Suspect]
     Active Substance: VALSARTAN
     Indication: PRODUCT USED FOR UNKNOWN INDICATION
     Dosage: 80 MG, UNK
     Route: 065
     Dates: start: 20130223
  2. VALSARTAN HEXAL [Suspect]
     Active Substance: VALSARTAN
     Dosage: 320 MG, QD (IN THE MORNINGS)
     Route: 065
     Dates: end: 2018
  3. VALSARTAN 1 A PHARMA [Suspect]
     Active Substance: VALSARTAN
     Dosage: 320 MG, QD (IN THE MORNINGS)
     Route: 065
     Dates: end: 2018
  4. IBUPROFENE [Concomitant]
     Active Substance: IBUPROFEN
     Indication: PRODUCT USED FOR UNKNOWN INDICATION
     Dosage: 800 MG, PRN (400-800 MG WHEN NEEDED)
     Route: 065
  5. VALSARTAN. [Suspect]
     Active Substance: VALSARTAN
     Dosage: 160 MG, UNK
     Route: 065
     Dates: end: 201906
  6. VALSARTAN. [Suspect]
     Active Substance: VALSARTAN
     Dosage: UNK UNK, QD, HALF A TABLET OF 160 MG, EVENING
     Route: 065
     Dates: end: 2018
  7. EBRANTIL [Concomitant]
     Active Substance: URAPIDIL
     Indication: PRODUCT USED FOR UNKNOWN INDICATION
     Dosage: 60 MG, BID, (MORNING, EVENING)
     Route: 065
  8. EBRANTIL [Concomitant]
     Active Substance: URAPIDIL
     Indication: PRODUCT USED FOR UNKNOWN INDICATION
     Dosage: 90 OT, UNK
     Route: 065
  9. BISOPROLOL [Concomitant]
     Active Substance: BISOPROLOL
     Indication: PRODUCT USED FOR UNKNOWN INDICATION
     Dosage: 5 OT TWICE DAILY (MORNING, EVENING)
     Route: 065
  10. BISOPROLOL [Concomitant]
     Active Substance: BISOPROLOL
     Dosage: UNK UNK, BID, 1 X 5, (MORNING, EVENING)
     Route: 065
  11. VALSARTAN AUROBINDO [Concomitant]
     Active Substance: VALSARTAN
     Indication: PRODUCT USED FOR UNKNOWN INDICATION
     Dosage: UNK
     Route: 065
  12. EBRANTIL [Concomitant]
     Active Substance: URAPIDIL
     Dosage: 180 MG
     Route: 065
  13. BISOPROLOL [Concomitant]
     Active Substance: BISOPROLOL
     Dosage: 10 MG
     Route: 065
  14. PANTOPRAZOLE SODIUM. [Concomitant]
     Active Substance: PANTOPRAZOLE SODIUM
     Indication: PRODUCT USED FOR UNKNOWN INDICATION
     Dosage: UNK
     Route: 065
  15. VALSARTAN. [Suspect]
     Active Substance: VALSARTAN
     Dosage: 160 MG, QD, MORNING
     Route: 065
  16. VALSARTAN 1 A PHARMA [Suspect]
     Active Substance: VALSARTAN
     Indication: HYPERTENSION
     Dosage: 160 MG, QD (IN THE MORNINGS)
     Route: 065
     Dates: start: 2012
  17. VALSARTAN HEXAL [Suspect]
     Active Substance: VALSARTAN
     Indication: HYPERTENSION
     Dosage: 160 MG, QD (IN THE MORNINGS)
     Route: 065
     Dates: start: 2012

REACTIONS (40)
  - Mastitis [Recovering/Resolving]
  - Tension [Unknown]
  - Hepatomegaly [Unknown]
  - Diverticulum intestinal [Unknown]
  - Endometrial hyperplasia [Unknown]
  - Pulmonary fibrosis [Unknown]
  - Gastrooesophageal reflux disease [Unknown]
  - Limb discomfort [Unknown]
  - Skin texture abnormal [Unknown]
  - General physical health deterioration [Unknown]
  - Adrenal adenoma [Unknown]
  - Sensory loss [Unknown]
  - Haematoma [Unknown]
  - Left atrial dilatation [Unknown]
  - Hypoaesthesia [Unknown]
  - Uterine leiomyoma [Recovered/Resolved]
  - Asthenia [Unknown]
  - Abdominal wall abscess [Unknown]
  - Enterobacter infection [Unknown]
  - Ovarian cyst [Unknown]
  - Left ventricular hypertrophy [Unknown]
  - Hepatic steatosis [Unknown]
  - Skin abrasion [Recovering/Resolving]
  - Erythema [Recovering/Resolving]
  - Skin hyperpigmentation [Unknown]
  - Spinal osteoarthritis [Unknown]
  - Amenorrhoea [Unknown]
  - Fatigue [Unknown]
  - Myalgia [Unknown]
  - Invasive ductal breast carcinoma [Unknown]
  - Epistaxis [Unknown]
  - Uterine leiomyoma [Unknown]
  - Paraesthesia [Unknown]
  - Fibroadenoma of breast [Unknown]
  - Fall [Unknown]
  - Postoperative wound infection [Recovering/Resolving]
  - Abdominal discomfort [Unknown]
  - Pain in extremity [Recovering/Resolving]
  - Bone pain [Recovering/Resolving]
  - Dyspnoea [Unknown]

NARRATIVE: CASE EVENT DATE: 201601
